FAERS Safety Report 7003887-1 (Version None)
Quarter: 2010Q3

REPORT INFORMATION
  Report Type: 
  Country: None (occurrence: None)
  Receive Date: 20100917
  Receipt Date: 20100907
  Transmission Date: 20110219
  Serious: Yes (Other)
  Sender: FDA-Public Use
  Company Number: 2010P1001131

PATIENT
  Age: 13 Year
  Sex: Male
  Weight: 78.9259 kg

DRUGS (5)
  1. SOLODYN [Suspect]
     Indication: ACNE
     Dosage: 90 MG, QD, PO
     Route: 048
     Dates: start: 20090324, end: 20100701
  2. PRILOSEC [Concomitant]
  3. FLONASE [Concomitant]
  4. ZYRTEC [Concomitant]
  5. PREV MEDS [Concomitant]

REACTIONS (1)
  - MIXED DEAFNESS [None]
